FAERS Safety Report 25944504 (Version 1)
Quarter: 2025Q4

REPORT INFORMATION
  Report Type: Spontaneous
  Country: US (occurrence: US)
  Receive Date: 20251021
  Receipt Date: 20251021
  Transmission Date: 20260117
  Serious: Yes (Hospitalization)
  Sender: CHEPLAPHARM
  Company Number: US-MLMSERVICE-20251006-PI659777-00174-2

PATIENT
  Age: 5 Year
  Sex: Male

DRUGS (7)
  1. QUETIAPINE [Suspect]
     Active Substance: QUETIAPINE
     Indication: Attention deficit hyperactivity disorder
     Dosage: DAILY DOSE: 50 MILLIGRAM
  2. QUETIAPINE [Suspect]
     Active Substance: QUETIAPINE
     Indication: Aggression
     Dosage: DAILY DOSE: 50 MILLIGRAM
  3. HALOPERIDOL [Suspect]
     Active Substance: HALOPERIDOL
     Indication: Agitation
     Route: 030
  4. ATOMOXETINE [Suspect]
     Active Substance: ATOMOXETINE
     Indication: Attention deficit hyperactivity disorder
     Dosage: DAILY DOSE: 20 MILLIGRAM
  5. ATOMOXETINE [Suspect]
     Active Substance: ATOMOXETINE
     Indication: Aggression
     Dosage: DAILY DOSE: 20 MILLIGRAM
  6. CLONIDINE [Suspect]
     Active Substance: CLONIDINE
     Indication: Attention deficit hyperactivity disorder
     Dosage: DAILY DOSE: 0.1 MILLIGRAM
  7. CLONIDINE [Suspect]
     Active Substance: CLONIDINE
     Indication: Aggression
     Dosage: DAILY DOSE: 0.1 MILLIGRAM

REACTIONS (3)
  - Dystonia [Recovered/Resolved]
  - Catatonia [Recovered/Resolved]
  - Off label use [Recovered/Resolved]
